FAERS Safety Report 9115656 (Version 2)
Quarter: 2013Q3

REPORT INFORMATION
  Report Type: Spontaneous
  Country: US (occurrence: US)
  Receive Date: 20130225
  Receipt Date: 20130826
  Transmission Date: 20140515
  Serious: No
  Sender: FDA-Public Use
  Company Number: US-BRISTOL-MYERS SQUIBB COMPANY-17067943

PATIENT
  Age: 64 Year
  Sex: Female
  Weight: 71.65 kg

DRUGS (10)
  1. KENALOG-40 INJ [Suspect]
     Indication: OSTEOARTHRITIS
     Dates: start: 201004
  2. METOPROLOL [Concomitant]
  3. SPIRONOLACTONE [Concomitant]
     Dosage: 1 DF=25 UNITS NOS
  4. CELEBREX [Concomitant]
  5. ATORVASTATIN [Concomitant]
     Dosage: 1 DF = 20 UNITS NOS
  6. ASPIRIN [Concomitant]
     Dosage: 1 DF = 81 UNITS NOS
  7. PEPCID [Concomitant]
  8. VITAMIN E [Concomitant]
  9. VITAMIN C [Concomitant]
  10. CALCIUM + VITAMIN D [Concomitant]

REACTIONS (2)
  - Alopecia [Unknown]
  - Drug ineffective [Unknown]
